FAERS Safety Report 6240270-0 (Version None)
Quarter: 2009Q2

REPORT INFORMATION
  Report Type: 
  Country: None (occurrence: None)
  Receive Date: 20090623
  Receipt Date: 20080522
  Transmission Date: 20091009
  Serious: No
  Sender: FDA-Public Use
  Company Number: US-ASTRAZENECA-2008UW10522

PATIENT
  Sex: Female

DRUGS (8)
  1. PULMICORT RESPULES [Suspect]
     Indication: DYSPNOEA
     Route: 055
  2. CYMBALTA [Concomitant]
  3. ASTELIN [Concomitant]
  4. VENTOLIN [Concomitant]
  5. SINGULAIR [Concomitant]
  6. ZYRTEC [Concomitant]
  7. PREDNISONE TAB [Concomitant]
  8. WELLBUTRIN [Concomitant]

REACTIONS (1)
  - FALSE POSITIVE LABORATORY RESULT [None]
